FAERS Safety Report 4715326-1 (Version None)
Quarter: 2005Q3

REPORT INFORMATION
  Report Type: 
  Country: None (occurrence: None)
  Receive Date: 20050715
  Receipt Date: 20050516
  Transmission Date: 20060218
  Serious: Yes (Hospitalization)
  Sender: FDA-Public Use
  Company Number: US-MERCK-0505USA02033

PATIENT
  Age: 77 Year
  Sex: Male

DRUGS (3)
  1. ZOCOR [Suspect]
     Indication: BLOOD CHOLESTEROL INCREASED
     Route: 048
     Dates: end: 20050501
  2. ZOCOR [Suspect]
     Route: 048
  3. ADVICOR [Concomitant]
     Route: 065

REACTIONS (1)
  - POLYMYOSITIS [None]
